FAERS Safety Report 5018282-4 (Version None)
Quarter: 2006Q2

REPORT INFORMATION
  Report Type: 
  Country: None (occurrence: None)
  Receive Date: 20060530
  Receipt Date: 20060517
  Transmission Date: 20061013
  Serious: Yes (Other)
  Sender: FDA-Public Use
  Company Number: 2006-05-1259

PATIENT

DRUGS (1)
  1. AERIUS TABLETS (DESLORATADINE) [Suspect]
     Dosage: ORAL
     Route: 048
     Dates: start: 20060503, end: 20060503

REACTIONS (4)
  - DYSPHONIA [None]
  - DYSPNOEA [None]
  - SENSATION OF FOREIGN BODY [None]
  - STRIDOR [None]
